FAERS Safety Report 6584819-7 (Version None)
Quarter: 2010Q1

REPORT INFORMATION
  Report Type: 
  Country: None (occurrence: None)
  Receive Date: 20100125
  Receipt Date: 20091123
  Transmission Date: 20100710
  Serious: Yes (Hospitalization)
  Sender: FDA-Public Use
  Company Number: 2009BI030872

PATIENT
  Age: 61 Year
  Sex: Female

DRUGS (11)
  1. TYSABRI [Suspect]
     Indication: MULTIPLE SCLEROSIS
     Dosage: 300 MG;QM;IV
     Route: 042
     Dates: start: 20071228, end: 20091125
  2. 4-AMINOPYRIDINE [Concomitant]
  3. PRILOSEC [Concomitant]
  4. PYLERA [Concomitant]
  5. ZOFRAN [Concomitant]
  6. ZANAFLEX [Concomitant]
  7. FENTANYL [Concomitant]
  8. BETASERON [Concomitant]
  9. AVONEX [Concomitant]
  10. COPAXONE [Concomitant]
  11. MITOXANTRONE [Concomitant]

REACTIONS (6)
  - CONSTIPATION [None]
  - HELICOBACTER INFECTION [None]
  - INFECTION SUSCEPTIBILITY INCREASED [None]
  - MULTIPLE SCLEROSIS RELAPSE [None]
  - URINARY TRACT INFECTION [None]
  - UROSEPSIS [None]
